FAERS Safety Report 21702140 (Version 1)
Quarter: 2022Q4

REPORT INFORMATION
  Report Type: Spontaneous
  Country: AT (occurrence: AT)
  Receive Date: 20221208
  Receipt Date: 20221208
  Transmission Date: 20230113
  Serious: Yes (Other)
  Sender: FDA-Public Use
  Company Number: AT-002147023-NVSC2022AT281582

PATIENT
  Age: 10 Year
  Sex: Male

DRUGS (7)
  1. TOPOTECAN [Suspect]
     Active Substance: TOPOTECAN HYDROCHLORIDE
     Indication: Ewing^s sarcoma metastatic
     Dosage: UNK, CYCLIC
     Route: 065
  2. CYCLOPHOSPHAMIDE [Suspect]
     Active Substance: CYCLOPHOSPHAMIDE
     Indication: Ewing^s sarcoma metastatic
     Dosage: UNK, CYCLIC
     Route: 065
  3. TEMOZOLOMIDE [Suspect]
     Active Substance: TEMOZOLOMIDE
     Indication: Ewing^s sarcoma metastatic
     Dosage: UNK, CYCLIC
     Route: 065
  4. IRINOTECAN [Suspect]
     Active Substance: IRINOTECAN
     Indication: Ewing^s sarcoma metastatic
     Dosage: UNK, CYCLIC
     Route: 065
  5. MELPHALAN [Suspect]
     Active Substance: MELPHALAN
     Indication: Ewing^s sarcoma metastatic
     Dosage: UNK (HIGH DOSE THERAPY)
     Route: 065
  6. TREOSULFAN [Suspect]
     Active Substance: TREOSULFAN
     Indication: Ewing^s sarcoma metastatic
     Dosage: UNK (HIGH DOSE THERAPY)
     Route: 065
  7. TRABECTEDIN [Suspect]
     Active Substance: TRABECTEDIN
     Indication: Ewing^s sarcoma metastatic
     Dosage: UNK
     Route: 065

REACTIONS (4)
  - Ewing^s sarcoma metastatic [Unknown]
  - Malignant neoplasm progression [Unknown]
  - Product use in unapproved indication [Unknown]
  - Product use issue [Unknown]
